FAERS Safety Report 13018282 (Version 1)
Quarter: 2016Q4

REPORT INFORMATION
  Report Type: Not Available
  Country: US (occurrence: US)
  Receive Date: 20161212
  Receipt Date: 20161212
  Transmission Date: 20170207
  Serious: No
  Sender: FDA-Public Use
  Company Number: US-ANIPHARMA-2016-US-001246

PATIENT
  Age: 43 Year
  Sex: Female
  Weight: 58.97 kg

DRUGS (2)
  1. FLUVOXAMINE MALEATE 25 MG [Suspect]
     Active Substance: FLUVOXAMINE MALEATE
     Dosage: TOTAL DOSE OF 250 MG DAILY
     Dates: start: 20151031
  2. FLUVOXAMINE MALEATE 100 MG [Suspect]
     Active Substance: FLUVOXAMINE MALEATE
     Dosage: TOTAL DOSE OF 250 MG DAILY
     Route: 048
     Dates: start: 20151031

REACTIONS (1)
  - Drug ineffective [Not Recovered/Not Resolved]

NARRATIVE: CASE EVENT DATE: 20160131
